FAERS Safety Report 16352514 (Version 1)
Quarter: 2019Q2

REPORT INFORMATION
  Report Type: Spontaneous
  Country: US (occurrence: US)
  Receive Date: 20190524
  Receipt Date: 20190524
  Transmission Date: 20190711
  Serious: No
  Sender: FDA-Public Use
  Company Number: US-JNJFOC-20190500080

PATIENT
  Sex: Female
  Weight: 76.66 kg

DRUGS (2)
  1. TYLENOL EXTRA STRENGTH [Suspect]
     Active Substance: ACETAMINOPHEN
     Indication: ARTHRALGIA
     Dosage: 2 CAPS 2 GEL CAPS A DAY AS NEEDED
     Route: 048
     Dates: start: 20190330, end: 20190430
  2. TYLENOL EXTRA STRENGTH [Suspect]
     Active Substance: ACETAMINOPHEN
     Indication: HEADACHE
     Dosage: 2 CAPS 2 GEL CAPS A DAY AS NEEDED
     Route: 048
     Dates: start: 20190330, end: 20190430

REACTIONS (1)
  - Drug ineffective [Unknown]
